FAERS Safety Report 5078653-7 (Version None)
Quarter: 2006Q3

REPORT INFORMATION
  Report Type: 
  Country: None (occurrence: None)
  Receive Date: 20060810
  Receipt Date: 20060810
  Transmission Date: 20061208
  Serious: Yes (Hospitalization)
  Sender: FDA-Public Use
  Company Number: None

PATIENT
  Age: 84 Year
  Sex: Female
  Weight: 58.9676 kg

DRUGS (2)
  1. BONIVA [Suspect]
     Indication: FRACTURE
     Dosage: 3 MG Q 3 MONTHS IV BOLUS
     Route: 040
     Dates: start: 20060729, end: 20060729
  2. BONIVA [Suspect]
     Indication: OSTEOPOROSIS
     Dosage: 3 MG Q 3 MONTHS IV BOLUS
     Route: 040
     Dates: start: 20060729, end: 20060729

REACTIONS (5)
  - ASTHENIA [None]
  - DYSPNOEA [None]
  - INFUSION SITE PHLEBITIS [None]
  - LUNG INFECTION [None]
  - MALAISE [None]
